FAERS Safety Report 4542620-X (Version None)
Quarter: 2004Q4

REPORT INFORMATION
  Report Type: 
  Country: None (occurrence: None)
  Receive Date: 20041230
  Receipt Date: 20020516
  Transmission Date: 20050328
  Serious: Yes (Hospitalization, Other)
  Sender: FDA-Public Use
  Company Number: US-MERCK-0205USA02143

PATIENT
  Age: 78 Year
  Sex: Female
  Weight: 76 kg

DRUGS (1)
  1. VIOXX [Suspect]
     Route: 048
     Dates: start: 20010508

REACTIONS (30)
  - ABDOMINAL DISTENSION [None]
  - ABDOMINAL PAIN [None]
  - ARRHYTHMIA [None]
  - ARTHRITIS [None]
  - ASTHENIA [None]
  - BLOOD CHOLESTEROL INCREASED [None]
  - BRONCHITIS [None]
  - CARDIAC VALVE DISEASE [None]
  - CEREBROVASCULAR ACCIDENT [None]
  - CORONARY ARTERY DISEASE [None]
  - DECREASED APPETITE [None]
  - DEMENTIA ALZHEIMER'S TYPE [None]
  - DIABETES MELLITUS NON-INSULIN-DEPENDENT [None]
  - DRUG INTERACTION [None]
  - DYSPNOEA [None]
  - GLAUCOMA [None]
  - HEPATOCELLULAR DAMAGE [None]
  - HYPERTENSION [None]
  - HYPOGLYCAEMIA [None]
  - INJURY [None]
  - INSOMNIA [None]
  - LOW DENSITY LIPOPROTEIN INCREASED [None]
  - MARKEDLY REDUCED DIETARY INTAKE [None]
  - PARKINSON'S DISEASE [None]
  - RENAL FAILURE [None]
  - RHEUMATOID ARTHRITIS [None]
  - SOMNOLENCE [None]
  - SPUTUM DISCOLOURED [None]
  - URINARY INCONTINENCE [None]
  - VOMITING [None]
